FAERS Safety Report 15319066 (Version 3)
Quarter: 2019Q1

REPORT INFORMATION
  Report Type: Spontaneous
  Country: US (occurrence: US)
  Receive Date: 20180826
  Receipt Date: 20190118
  Transmission Date: 20190417
  Serious: Yes (Other)
  Sender: FDA-Public Use
  Company Number: US-PRINSTON PHARMACEUTICAL INC.-2018PRN00917

PATIENT
  Sex: Female
  Weight: 89.8 kg

DRUGS (5)
  1. UNSPECIFIED VITAMINS [Concomitant]
     Active Substance: VITAMINS
  2. VALSARTAN. [Suspect]
     Active Substance: VALSARTAN
     Indication: BLOOD PRESSURE ABNORMAL
     Dosage: 160 MG, 1X/DAY
     Route: 048
     Dates: start: 200804, end: 201611
  3. METOPROLOL. [Concomitant]
     Active Substance: METOPROLOL
  4. FISH OIL [Concomitant]
     Active Substance: FISH OIL
  5. AMLODIPINE [Concomitant]
     Active Substance: AMLODIPINE BESYLATE

REACTIONS (2)
  - Breast cancer female [Unknown]
  - Weight decreased [Unknown]
